FAERS Safety Report 14517083 (Version 1)
Quarter: 2018Q1

REPORT INFORMATION
  Report Type: Spontaneous
  Country: US (occurrence: US)
  Receive Date: 20180212
  Receipt Date: 20180212
  Transmission Date: 20180509
  Serious: No
  Sender: FDA-Public Use
  Company Number: US-ASTRAZENECA-2018SE15133

PATIENT
  Sex: Male

DRUGS (2)
  1. WARFARIN [Concomitant]
     Active Substance: WARFARIN
  2. BRILINTA [Suspect]
     Active Substance: TICAGRELOR
     Dosage: UNKNOWN
     Route: 048
     Dates: start: 20171003

REACTIONS (7)
  - Weight decreased [Unknown]
  - Dizziness [Unknown]
  - Product use issue [Unknown]
  - Off label use [Unknown]
  - Epistaxis [Unknown]
  - Hypotension [Unknown]
  - Tinnitus [Unknown]
